FAERS Safety Report 16799930 (Version 1)
Quarter: 2019Q4

REPORT INFORMATION
  Report Type: Spontaneous
  Country: US (occurrence: US)
  Receive Date: 20190912
  Receipt Date: 20190912
  Transmission Date: 20200122
  Serious: Yes (Other)
  Sender: FDA-Public Use
  Company Number: None

PATIENT
  Age: 20 Year
  Sex: Female
  Weight: 62.8 kg

DRUGS (3)
  1. LEFLUNOMIDE 20MG [Concomitant]
     Active Substance: LEFLUNOMIDE
  2. REMICADE [Suspect]
     Active Substance: INFLIXIMAB
     Indication: RHEUMATOID ARTHRITIS
     Dosage: 200 MG INTRAVENOUS DRIP WEEKS APART?
     Route: 041
     Dates: start: 20190729
  3. HYDROXYCHLOROQUINE 200MG [Concomitant]
     Active Substance: HYDROXYCHLOROQUINE

REACTIONS (6)
  - Hot flush [None]
  - Rash macular [None]
  - Chest discomfort [None]
  - Respiratory rate increased [None]
  - Erythema [None]
  - Infusion related reaction [None]

NARRATIVE: CASE EVENT DATE: 20190911
